FAERS Safety Report 7211745-2 (Version None)
Quarter: 2011Q1

REPORT INFORMATION
  Report Type: 
  Country: None (occurrence: None)
  Receive Date: 20110105
  Receipt Date: 20101221
  Transmission Date: 20110831
  Serious: Yes (Other)
  Sender: FDA-Public Use
  Company Number: CA-AMGEN-CANSP2010006268

PATIENT

DRUGS (4)
  1. PROLIA [Suspect]
     Indication: OSTEOPOROSIS
  2. VITAMIN D3 [Concomitant]
     Dosage: 1000 UNK, QD
     Route: 048
     Dates: start: 20030101
  3. PROLIA [Suspect]
     Indication: PRODUCT USED FOR UNKNOWN INDICATION
     Dosage: 60 MG, ONE TIME DOSE
     Route: 058
     Dates: start: 20101110
  4. CALCIUM CARBONATE [Concomitant]
     Dosage: 500 MG, UNK
     Route: 048
     Dates: start: 20030101

REACTIONS (1)
  - VAGINAL HAEMORRHAGE [None]
